FAERS Safety Report 24979090 (Version 1)
Quarter: 2025Q1

REPORT INFORMATION
  Report Type: Spontaneous
  Country: HU (occurrence: HU)
  Receive Date: 20250218
  Receipt Date: 20250218
  Transmission Date: 20250408
  Serious: Yes (Other)
  Sender: ROCHE
  Company Number: HU-ROCHE-10000208456

PATIENT
  Age: 60 Year
  Sex: Female

DRUGS (7)
  1. PHESGO [Suspect]
     Active Substance: HYALURONIDASE-ZZXF\PERTUZUMAB\TRASTUZUMAB
     Indication: Product used for unknown indication
     Route: 065
  2. HERCEPTIN [Suspect]
     Active Substance: TRASTUZUMAB
     Indication: Product used for unknown indication
     Route: 065
  3. AMLODIPINE [Suspect]
     Active Substance: AMLODIPINE BESYLATE
     Indication: Product used for unknown indication
     Route: 065
  4. TAMOXIFEN [Suspect]
     Active Substance: TAMOXIFEN
     Indication: Product used for unknown indication
     Route: 065
  5. LOSARTAN [Concomitant]
     Active Substance: LOSARTAN
  6. BISOPROLOL [Concomitant]
     Active Substance: BISOPROLOL
  7. RAMIPRIL [Concomitant]
     Active Substance: RAMIPRIL

REACTIONS (4)
  - Dyspnoea [Unknown]
  - Joint swelling [Recovered/Resolved]
  - Anxiety [Unknown]
  - Blood pressure fluctuation [Unknown]
